FAERS Safety Report 25616123 (Version 3)
Quarter: 2025Q3

REPORT INFORMATION
  Report Type: Spontaneous
  Country: EU (occurrence: EU)
  Receive Date: 20250729
  Receipt Date: 20250922
  Transmission Date: 20251020
  Serious: Yes (Hospitalization)
  Sender: AUROBINDO
  Company Number: EU-IDORSIA-011078-2025-DE

PATIENT
  Age: 74 Year
  Sex: Male

DRUGS (3)
  1. TADALAFIL [Interacting]
     Active Substance: TADALAFIL
     Indication: Product used for unknown indication
     Route: 065
     Dates: start: 20250706, end: 20250706
  2. TADALAFIL [Interacting]
     Active Substance: TADALAFIL
     Route: 065
  3. QUVIVIQ [Interacting]
     Active Substance: DARIDOREXANT
     Indication: Insomnia
     Route: 048
     Dates: start: 2025, end: 2025

REACTIONS (6)
  - Fatigue [Recovered/Resolved]
  - Speech disorder [Unknown]
  - Drug interaction [Unknown]
  - Restlessness [Recovering/Resolving]
  - Dysarthria [Recovered/Resolved]
  - Drug ineffective [Unknown]

NARRATIVE: CASE EVENT DATE: 20250706
